FAERS Safety Report 10351408 (Version 4)
Quarter: 2014Q4

REPORT INFORMATION
  Report Type: Spontaneous
  Country: US (occurrence: US)
  Receive Date: 20140730
  Receipt Date: 20141014
  Transmission Date: 20150528
  Serious: Yes (Hospitalization, Other)
  Sender: FDA-Public Use
  Company Number: US-PFIZER INC-2014211392

PATIENT
  Age: 55 Year
  Sex: Female

DRUGS (15)
  1. ASPIRIN. [Concomitant]
     Active Substance: ASPIRIN
     Dosage: 81 MG, 1X/DAY
     Route: 048
  2. TOCILIZUMAB [Concomitant]
     Active Substance: TOCILIZUMAB
     Dosage: AT 162 MG/ 0.9ML AS DIRECTED,  EVERY 2 WEEKS
     Route: 058
  3. XELJANZ [Suspect]
     Active Substance: TOFACITINIB CITRATE
     Dosage: 5 MG, 2X/DAY
     Route: 048
     Dates: start: 201407, end: 20140909
  4. PLAQUENIL [Concomitant]
     Active Substance: HYDROXYCHLOROQUINE SULFATE
     Dosage: 200 MG, 1X/DAY (2 TABLET WITH FOOD OR MILK)
     Route: 048
  5. VITAMIN D [Concomitant]
     Active Substance: CHOLECALCIFEROL
     Dosage: 1 DF (1000UNIT), 1X/DAY
     Route: 048
  6. XANAX [Concomitant]
     Active Substance: ALPRAZOLAM
     Dosage: 0.25 MG, AS NEEDED (1 TABLET QHS)
  7. PERCOCET [Concomitant]
     Active Substance: ACETAMINOPHEN\OXYCODONE HYDROCHLORIDE
     Dosage: 5/325MG TABLET 1 TABLET AS NEEDED EVERY 6 HRS
     Route: 048
  8. FISH OIL [Concomitant]
     Active Substance: FISH OIL
     Dosage: UNK
  9. CELEBREX [Concomitant]
     Active Substance: CELECOXIB
     Dosage: 200MG TWICE DAILY AS NEEDED WITH FOOD
     Route: 048
  10. FOLIC ACID. [Concomitant]
     Active Substance: FOLIC ACID
     Dosage: 2 MG, 1X/DAY (2 TABLET ONCE A DAY)
     Route: 048
  11. HYDROXYCHLOROQUINE SULFATE. [Concomitant]
     Active Substance: HYDROXYCHLOROQUINE SULFATE
     Dosage: 200MG TABLET AT 2 TABLETS DAILY WITH FOOD OR MILK
  12. XELJANZ [Suspect]
     Active Substance: TOFACITINIB CITRATE
     Indication: RHEUMATOID ARTHRITIS
     Dosage: 5MG TWICE DAILY
     Route: 048
     Dates: start: 20130214, end: 201406
  13. VITAMIN B COMPLEX [Concomitant]
     Active Substance: CYANOCOBALAMIN\DEXPANTHENOL\NIACINAMIDE\PYRIDOXINE HYDROCHLORIDE\RIBOFLAVIN 5^-PHOSPHATE SODIUM\THIAMINE HYDROCHLORIDE\VITAMIN B COMPLEX
     Dosage: UNK (AS DIRECTED)
  14. PREDNISONE. [Concomitant]
     Active Substance: PREDNISONE
     Dosage: 5MG TABLET ORAL AT 1-2 TABLET ONCE DAILY WITH FOOD OR MILK (7.5MG DAILY)
  15. AMOXICILLIN. [Concomitant]
     Active Substance: AMOXICILLIN
     Dosage: 775 MG, 2X/DAY (NOTES: 775 MG BID FOR 10 DAYS)

REACTIONS (17)
  - Appendiceal abscess [Recovered/Resolved]
  - Mouth ulceration [Unknown]
  - Diarrhoea [Unknown]
  - Visual impairment [Unknown]
  - Colonic abscess [Recovered/Resolved]
  - Pyrexia [Unknown]
  - Sjogren^s syndrome [Unknown]
  - Constipation [Unknown]
  - Chills [Unknown]
  - Pain in extremity [Unknown]
  - Dyspnoea [Unknown]
  - Appendicitis perforated [Recovered/Resolved]
  - Headache [Unknown]
  - Chest pain [Unknown]
  - Musculoskeletal stiffness [Unknown]
  - Abdominal pain [Unknown]
  - Arthralgia [Unknown]

NARRATIVE: CASE EVENT DATE: 201406
